FAERS Safety Report 9975835 (Version 1)
Quarter: 2014Q1

REPORT INFORMATION
  Report Type: Spontaneous
  Country: US (occurrence: US)
  Receive Date: 20140306
  Receipt Date: 20140306
  Transmission Date: 20141002
  Serious: Yes (Other)
  Sender: FDA-Public Use
  Company Number: CHPA2014US003477

PATIENT
  Age: 66 Year
  Sex: Female

DRUGS (3)
  1. VOLTAREN GEL [Suspect]
     Indication: OSTEOARTHRITIS
     Dosage: 1 G, QD
     Route: 061
     Dates: start: 2011
  2. VOLTAREN GEL [Suspect]
     Indication: UNDERDOSE
  3. VOLTAREN GEL [Suspect]
     Indication: OFF LABEL USE

REACTIONS (4)
  - Thrombosis [Unknown]
  - Dyspnoea [Recovered/Resolved]
  - Pain [Unknown]
  - Wrong technique in drug usage process [Unknown]
